FAERS Safety Report 9592471 (Version 1)
Quarter: 2013Q3

REPORT INFORMATION
  Report Type: Spontaneous
  Country: US (occurrence: None)
  Receive Date: 20130927
  Receipt Date: 20130927
  Transmission Date: 20140515
  Serious: No
  Sender: FDA-Public Use
  Company Number: CABO-13003200

PATIENT
  Age: 35 Year
  Sex: Female

DRUGS (8)
  1. COMETRIQ (CABOZANTINIB) CAPSULE [Suspect]
     Indication: THYROID CANCER
     Route: 048
     Dates: start: 20130207, end: 20130330
  2. QUASENSE [Concomitant]
  3. LEVOTHYROXINE [Concomitant]
  4. ZOLPIDEM [Concomitant]
  5. CARISOPRODOL [Concomitant]
  6. BUPIVACAINE [Concomitant]
  7. MORPHINE SULFATE [Concomitant]
  8. MULTIVITAMINS [Concomitant]

REACTIONS (3)
  - Hyperhidrosis [None]
  - Palmar-plantar erythrodysaesthesia syndrome [None]
  - Blood pressure increased [None]
